FAERS Safety Report 26051843 (Version 1)
Quarter: 2025Q4

REPORT INFORMATION
  Report Type: Spontaneous
  Country: RU (occurrence: RU)
  Receive Date: 20251117
  Receipt Date: 20251117
  Transmission Date: 20260118
  Serious: Yes (Other)
  Sender: ROCHE
  Company Number: RU-ROCHE-10000431103

PATIENT
  Age: 60 Year
  Sex: Male

DRUGS (1)
  1. TECENTRIQ [Suspect]
     Active Substance: ATEZOLIZUMAB
     Indication: Lung neoplasm malignant
     Route: 065
     Dates: start: 202407

REACTIONS (1)
  - Pneumonia [Unknown]
